FAERS Safety Report 5594632-5 (Version None)
Quarter: 2008Q1

REPORT INFORMATION
  Report Type: 
  Country: None (occurrence: None)
  Receive Date: 20080117
  Receipt Date: 20080111
  Transmission Date: 20080703
  Serious: Yes (Other)
  Sender: FDA-Public Use
  Company Number: US-PURDUE-USA_2007_0030218

PATIENT
  Sex: Female
  Weight: 63 kg

DRUGS (6)
  1. WARFARIN SODIUM [Concomitant]
  2. XANAX [Concomitant]
  3. NEURONTIN [Concomitant]
  4. ALBUTEROL [Concomitant]
  5. PENTOXIFYLLINE [Concomitant]
  6. OXYCONTIN [Suspect]
     Indication: ARTHRITIS
     Dosage: 40 MG, BID
     Dates: start: 19990130, end: 20010614

REACTIONS (5)
  - DRUG DEPENDENCE [None]
  - FEELING ABNORMAL [None]
  - MALAISE [None]
  - MENTAL DISORDER [None]
  - SUICIDAL IDEATION [None]
